FAERS Safety Report 9050722 (Version 1)
Quarter: 2013Q1

REPORT INFORMATION
  Report Type: Spontaneous
  Country: HR (occurrence: HR)
  Receive Date: 20130205
  Receipt Date: 20130205
  Transmission Date: 20140127
  Serious: Yes (Death, Life-Threatening)
  Sender: FDA-Public Use
  Company Number: HR-ABBOTT-13P-216-1045377-00

PATIENT
  Age: 16 Year
  Sex: Male

DRUGS (1)
  1. TARKA [Suspect]
     Indication: PRODUCT USED FOR UNKNOWN INDICATION
     Dosage: 240 MG VERAPAMIL/4 MG TRANDOLAPRIL
     Route: 048

REACTIONS (2)
  - Death [Fatal]
  - Overdose [Not Recovered/Not Resolved]
